FAERS Safety Report 6927802-1 (Version None)
Quarter: 2010Q3

REPORT INFORMATION
  Report Type: 
  Country: None (occurrence: None)
  Receive Date: 20100817
  Receipt Date: 20100805
  Transmission Date: 20110219
  Serious: Yes (Disabling)
  Sender: FDA-Public Use
  Company Number: AU-PFIZER INC-2010099349

PATIENT
  Age: 37 Year
  Sex: Male

DRUGS (1)
  1. CHAMPIX [Suspect]
     Indication: TOBACCO USER
     Dosage: 1 MG, 2X/DAY
     Route: 048
     Dates: start: 20100619, end: 20100624

REACTIONS (5)
  - IRRITABILITY [None]
  - MOOD SWINGS [None]
  - MYOCLONUS [None]
  - NIGHTMARE [None]
  - RESTLESS LEGS SYNDROME [None]
